FAERS Safety Report 23899647 (Version 1)
Quarter: 2024Q2

REPORT INFORMATION
  Report Type: Spontaneous
  Country: US (occurrence: None)
  Receive Date: 20240526
  Receipt Date: 20240526
  Transmission Date: 20240715
  Serious: No
  Sender: FDA-Public Use
  Company Number: US-ROCHE-3340264

PATIENT
  Age: 57 Year
  Sex: Female

DRUGS (2)
  1. ACTEMRA [Suspect]
     Active Substance: TOCILIZUMAB
     Indication: Product used for unknown indication
     Dosage: STRENGTH: 162MG/0.9ML
     Route: 058
     Dates: start: 202212
  2. ACTEMRA [Suspect]
     Active Substance: TOCILIZUMAB

REACTIONS (3)
  - Peripheral swelling [Unknown]
  - Contusion [Unknown]
  - Burning sensation [Unknown]

NARRATIVE: CASE EVENT DATE: 20230302
